FAERS Safety Report 7530672-4 (Version None)
Quarter: 2011Q2

REPORT INFORMATION
  Report Type: 
  Country: None (occurrence: None)
  Receive Date: 20110607
  Receipt Date: 20110526
  Transmission Date: 20111010
  Serious: Yes (Other)
  Sender: FDA-Public Use
  Company Number: CA-BAYER-2011-045368

PATIENT
  Age: 58 Year
  Sex: Male

DRUGS (4)
  1. CODEINE SULFATE [Concomitant]
     Indication: NECK PAIN
  2. LEVITRA [Suspect]
     Indication: RAYNAUD'S PHENOMENON
  3. LEVITRA [Suspect]
     Indication: POOR PERIPHERAL CIRCULATION
     Dosage: 20 MG, QD
  4. ASPIRIN [Concomitant]
     Indication: NECK PAIN

REACTIONS (4)
  - GASTRIC ULCER HAEMORRHAGE [None]
  - POOR PERIPHERAL CIRCULATION [None]
  - FAECES DISCOLOURED [None]
  - GASTRIC ULCER [None]
